FAERS Safety Report 7539140-7 (Version None)
Quarter: 2011Q2

REPORT INFORMATION
  Report Type: 
  Country: None (occurrence: None)
  Receive Date: 20110610
  Receipt Date: 20020222
  Transmission Date: 20111010
  Serious: Yes (Other)
  Sender: FDA-Public Use
  Company Number: PHBS2002CA02707

PATIENT
  Sex: Female

DRUGS (1)
  1. CLOZAPINE [Suspect]
     Route: 048
     Dates: start: 20020121

REACTIONS (2)
  - CHOLELITHIASIS [None]
  - CYTOLYTIC HEPATITIS [None]
